FAERS Safety Report 8067333 (Version 3)
Quarter: 2013Q1

REPORT INFORMATION
  Report Type: Spontaneous
  Country: US (occurrence: US)
  Receive Date: 20110803
  Receipt Date: 20130301
  Transmission Date: 20140127
  Serious: Yes (Other)
  Sender: FDA-Public Use
  Company Number: US-ROCHE-775835

PATIENT
  Age: 35 None
  Sex: Female
  Weight: 44.5 kg

DRUGS (1)
  1. ACCUTANE [Suspect]
     Indication: ACNE
     Route: 065
     Dates: start: 199611, end: 199703

REACTIONS (7)
  - Colitis ulcerative [Unknown]
  - Inflammatory bowel disease [Unknown]
  - Depression [Unknown]
  - Obsessive-compulsive disorder [Unknown]
  - Panic attack [Unknown]
  - Generalised anxiety disorder [Unknown]
  - Irritable bowel syndrome [Unknown]
